FAERS Safety Report 15633874 (Version 1)
Quarter: 2018Q4

REPORT INFORMATION
  Report Type: Spontaneous
  Country: US (occurrence: US)
  Receive Date: 20181119
  Receipt Date: 20181119
  Transmission Date: 20190205
  Serious: No
  Sender: FDA-Public Use
  Company Number: None

PATIENT
  Age: 31 Year
  Sex: Female
  Weight: 68.85 kg

DRUGS (1)
  1. ABILIFY [Suspect]
     Active Substance: ARIPIPRAZOLE
     Indication: DEPRESSION

REACTIONS (8)
  - Marital problem [None]
  - Gambling disorder [None]
  - Panic reaction [None]
  - Feeling guilty [None]
  - Autophobia [None]
  - Suicidal ideation [None]
  - Obsessive thoughts [None]
  - Economic problem [None]

NARRATIVE: CASE EVENT DATE: 20131228
